FAERS Safety Report 10387422 (Version 1)
Quarter: 2014Q3

REPORT INFORMATION
  Report Type: Spontaneous
  Country: US (occurrence: US)
  Receive Date: 20140815
  Receipt Date: 20140815
  Transmission Date: 20150326
  Serious: Yes (Other)
  Sender: FDA-Public Use
  Company Number: US-009507513-1408USA005418

PATIENT
  Sex: Male

DRUGS (1)
  1. PROPECIA [Suspect]
     Active Substance: FINASTERIDE
     Indication: ANDROGENETIC ALOPECIA
     Dosage: UNK
     Dates: start: 20110911, end: 201210

REACTIONS (16)
  - Night blindness [Recovering/Resolving]
  - Loss of libido [Not Recovered/Not Resolved]
  - Cognitive disorder [Recovering/Resolving]
  - Decreased appetite [Recovering/Resolving]
  - Insomnia [Recovering/Resolving]
  - Testicular atrophy [Not Recovered/Not Resolved]
  - Muscle spasms [Recovering/Resolving]
  - Penile size reduced [Not Recovered/Not Resolved]
  - Sensory loss [Unknown]
  - Loss of employment [Unknown]
  - Erectile dysfunction [Unknown]
  - Suicidal ideation [Unknown]
  - Adverse event [Unknown]
  - Abdominal distension [Recovering/Resolving]
  - Heart rate increased [Recovering/Resolving]
  - Anxiety [Unknown]

NARRATIVE: CASE EVENT DATE: 201201
